FAERS Safety Report 6377929-0 (Version None)
Quarter: 2009Q3

REPORT INFORMATION
  Report Type: 
  Country: None (occurrence: None)
  Receive Date: 20090925
  Receipt Date: 20090918
  Transmission Date: 20100115
  Serious: Yes (Other)
  Sender: FDA-Public Use
  Company Number: PHHO2009US11161

PATIENT
  Sex: Male
  Weight: 124 kg

DRUGS (2)
  1. RAD 666 RAD+TAB+PTR [Suspect]
     Indication: HEART TRANSPLANT
     Dosage: 0.75 MG, BID
     Route: 048
     Dates: start: 20090913
  2. NEORAL [Concomitant]
     Indication: HEART TRANSPLANT

REACTIONS (2)
  - LIPOMA [None]
  - NECK MASS [None]
